FAERS Safety Report 16462719 (Version 1)
Quarter: 2019Q2

REPORT INFORMATION
  Report Type: Spontaneous
  Country: US (occurrence: US)
  Receive Date: 20190621
  Receipt Date: 20190621
  Transmission Date: 20190711
  Serious: No
  Sender: FDA-Public Use
  Company Number: US-TEVA-2019-US-1066744

PATIENT
  Sex: Male

DRUGS (5)
  1. ZYPREXA 10 MG TABLET [Concomitant]
  2. KLONOPIN 0.5 MG TABLET [Concomitant]
  3. LAMICTAL 100 MG TABLET [Concomitant]
  4. HYDROXYZINE HCL 10 MG/5 ML SOLUTION [Concomitant]
     Dosage: 10 MG/5 ML SOLUTION
  5. AUSTEDO [Suspect]
     Active Substance: DEUTETRABENAZINE
     Indication: DYSKINESIA
     Dosage: 24 MILLIGRAM DAILY;
     Route: 048

REACTIONS (3)
  - Dyskinesia [Unknown]
  - Confusional state [Unknown]
  - Feeling abnormal [Unknown]
